FAERS Safety Report 9035617 (Version 1)
Quarter: 2013Q1

REPORT INFORMATION
  Report Type: Report from Study
  Country: US (occurrence: US)
  Receive Date: 20130129
  Receipt Date: 20130129
  Transmission Date: 20140127
  Serious: No
  Sender: FDA-Public Use
  Company Number: US-ABBOTT-12P-163-0911046-00

PATIENT
  Age: 42 Year
  Sex: Female

DRUGS (8)
  1. HUMIRA 40 MG/0.8 ML PEN [Suspect]
     Indication: PSORIATIC ARTHROPATHY
     Dates: start: 20110826
  2. GABAPENTIN [Concomitant]
     Indication: NEUROPATHY PERIPHERAL
     Route: 048
  3. TOPAMAX [Concomitant]
     Indication: NEUROPATHY PERIPHERAL
     Dosage: 25 MG DAILY
     Route: 048
  4. DETROL LA [Concomitant]
     Indication: BLADDER DISORDER
     Route: 048
  5. FOBIC [Concomitant]
     Indication: PSORIATIC ARTHROPATHY
     Dosage: DAILY
     Route: 048
  6. METHOTREXATE [Concomitant]
     Indication: PSORIATIC ARTHROPATHY
     Dosage: 6 TABS DAILY
     Route: 048
  7. ALEVE [Concomitant]
     Indication: PAIN
     Dosage: 1 TAB DAILY
     Route: 048
  8. WOMEN^S MULTIVITAMIN (IRON FREE) [Concomitant]
     Indication: VITAMIN SUPPLEMENTATION
     Dosage: 1 TAB DAILY
     Route: 048

REACTIONS (5)
  - Nasopharyngitis [Not Recovered/Not Resolved]
  - Fatigue [Not Recovered/Not Resolved]
  - Pain [Not Recovered/Not Resolved]
  - Cough [Not Recovered/Not Resolved]
  - Oropharyngeal pain [Not Recovered/Not Resolved]
